FAERS Safety Report 7601620-3 (Version None)
Quarter: 2011Q3

REPORT INFORMATION
  Report Type: 
  Country: None (occurrence: None)
  Receive Date: 20110711
  Receipt Date: 20110629
  Transmission Date: 20111222
  Serious: Yes (Other)
  Sender: FDA-Public Use
  Company Number: PHHY2011DE58176

PATIENT
  Age: 90 Year
  Sex: Female

DRUGS (2)
  1. AREDIA [Suspect]
     Indication: MULTIPLE MYELOMA
     Dosage: UNK
     Dates: start: 19990301, end: 20040401
  2. IBANDRONATE SODIUM [Suspect]
     Dosage: UNK
     Dates: start: 20011101, end: 20050501

REACTIONS (2)
  - ABSCESS JAW [None]
  - OSTEONECROSIS OF JAW [None]
